FAERS Safety Report 8051816-4 (Version None)
Quarter: 2012Q1

REPORT INFORMATION
  Report Type: 
  Country: None (occurrence: None)
  Receive Date: 20120118
  Receipt Date: 20120105
  Transmission Date: 20120608
  Serious: Yes (Hospitalization)
  Sender: FDA-Public Use
  Company Number: CA-RANBAXY-2012US-51789

PATIENT
  Age: 83 Year
  Sex: Male

DRUGS (2)
  1. CLARITHROMYCIN [Suspect]
     Indication: PNEUMONIA
     Dosage: 500 MG, BID
     Route: 048
  2. DIGOXIN [Suspect]
     Indication: PRODUCT USED FOR UNKNOWN INDICATION
     Dosage: UNK
     Route: 048

REACTIONS (10)
  - DRUG INTERACTION [None]
  - VENTRICULAR EXTRASYSTOLES [None]
  - RENAL IMPAIRMENT [None]
  - DYSPNOEA EXERTIONAL [None]
  - DECREASED APPETITE [None]
  - COUGH [None]
  - DIZZINESS [None]
  - NAUSEA [None]
  - TOXICITY TO VARIOUS AGENTS [None]
  - FATIGUE [None]
